FAERS Safety Report 9379387 (Version 4)
Quarter: 2013Q3

REPORT INFORMATION
  Report Type: Spontaneous
  Country: US (occurrence: None)
  Receive Date: 20130626
  Receipt Date: 20130724
  Transmission Date: 20140515
  Serious: Yes (Death, Other)
  Sender: FDA-Public Use
  Company Number: JPI-P-033100

PATIENT
  Age: 42 Year
  Sex: Female

DRUGS (8)
  1. XYREM [Suspect]
     Indication: FIBROMYALGIA
     Dosage: 4.5 GM (2.25 GM,2 IN 1 D)
     Route: 048
     Dates: start: 20120807, end: 2012
  2. DULOXETINE [Concomitant]
  3. TERAZOSIN(CAPSULES) [Concomitant]
  4. VITAMIN B 12(INJECTION) [Concomitant]
  5. QUETIAPINE FUMARATE(TABLETS) [Concomitant]
  6. HYDROCODONE BITARTRATE(TABLETS) [Concomitant]
  7. PANTOPRAZOLE(TABLETS) [Concomitant]
  8. CLONAZEPAM(TABLETS) [Concomitant]

REACTIONS (11)
  - Depression [None]
  - Anxiety [None]
  - Condition aggravated [None]
  - Snoring [None]
  - Restless legs syndrome [None]
  - Gastrooesophageal reflux disease [None]
  - Hypersomnia [None]
  - Fatigue [None]
  - Nausea [None]
  - Periodic limb movement disorder [None]
  - Abnormal dreams [None]
